FAERS Safety Report 11278620 (Version 1)
Quarter: 2015Q3

REPORT INFORMATION
  Report Type: Spontaneous
  Country: US (occurrence: None)
  Receive Date: 20150716
  Receipt Date: 20150716
  Transmission Date: 20151125
  Serious: Yes (Death)
  Sender: FDA-Public Use
  Company Number: None

PATIENT
  Age: 62 Year
  Sex: Female
  Weight: 73.03 kg

DRUGS (3)
  1. CARBOPLATIN. [Suspect]
     Active Substance: CARBOPLATIN
     Dates: end: 20150528
  2. BEVACIZUMAB (RHUMAB VEGF) [Suspect]
     Active Substance: BEVACIZUMAB
     Indication: MEDIASTINAL DISORDER
     Dates: end: 20150528
  3. BEVACIZUMAB (RHUMAB VEGF) [Suspect]
     Active Substance: BEVACIZUMAB
     Indication: RESPIRATORY DISORDER
     Dates: end: 20150528

REACTIONS (3)
  - Haemoptysis [None]
  - Chronic obstructive pulmonary disease [None]
  - Cardio-respiratory arrest [None]

NARRATIVE: CASE EVENT DATE: 20150703
